FAERS Safety Report 8540425-6 (Version None)
Quarter: 2012Q3

REPORT INFORMATION
  Report Type: 
  Country: None (occurrence: None)
  Receive Date: 20120726
  Receipt Date: 20110613
  Transmission Date: 20120928
  Serious: No
  Sender: FDA-Public Use
  Company Number: US-ASTRAZENECA-2011SE36025

PATIENT
  Age: 61 Year
  Sex: Male

DRUGS (3)
  1. SEROQUEL [Suspect]
     Indication: BIPOLAR DISORDER
     Route: 048
  2. SEROQUEL [Suspect]
     Route: 048
  3. SEROQUEL [Suspect]
     Route: 048

REACTIONS (10)
  - DRY EYE [None]
  - DRUG DOSE OMISSION [None]
  - TREATMENT NONCOMPLIANCE [None]
  - INSOMNIA [None]
  - DRY MOUTH [None]
  - CONFUSIONAL STATE [None]
  - MANIA [None]
  - PAIN [None]
  - DYSPHAGIA [None]
  - DISORIENTATION [None]
